FAERS Safety Report 8076608-1 (Version None)
Quarter: 2012Q1

REPORT INFORMATION
  Report Type: 
  Country: None (occurrence: None)
  Receive Date: 20120127
  Receipt Date: 20120120
  Transmission Date: 20120608
  Serious: No
  Sender: FDA-Public Use
  Company Number: US-B.I. PHARMACEUTICALS,INC./RIDGEFIELD-2012-BP-01235BP

PATIENT
  Sex: Female

DRUGS (10)
  1. PROAIR FHA [Concomitant]
     Indication: CHRONIC OBSTRUCTIVE PULMONARY DISEASE
     Route: 055
  2. HYDROCODONE [Concomitant]
     Indication: PAIN
     Dates: start: 20060101
  3. SIMVASTATIN [Concomitant]
     Indication: BLOOD CHOLESTEROL INCREASED
     Dosage: 40 MG
     Route: 048
     Dates: start: 20080101
  4. XANAX [Concomitant]
     Indication: ANXIETY
     Dosage: 3 MG
     Route: 048
     Dates: start: 20050101
  5. CARVEDILOL [Concomitant]
     Indication: HYPERTENSION
     Dosage: 3.125 MG
     Route: 048
     Dates: start: 20080101
  6. ASPIRIN [Concomitant]
     Indication: PROPHYLAXIS
     Dosage: 81 MG
     Route: 048
     Dates: start: 20080101
  7. CARISOPRODOL [Concomitant]
     Indication: MUSCLE SPASMS
     Dosage: 700 MG
     Route: 048
     Dates: start: 20060101
  8. HYDROXYZINE [Concomitant]
     Indication: ECZEMA
     Dates: start: 20050101
  9. SPIRIVA [Suspect]
     Indication: CHRONIC OBSTRUCTIVE PULMONARY DISEASE
     Route: 055
     Dates: start: 20080101
  10. POLYETHYLENE GLYCOL [Concomitant]
     Indication: CONSTIPATION
     Dates: start: 20060101

REACTIONS (3)
  - BLINDNESS [None]
  - EYE PRURITUS [None]
  - EYE PAIN [None]
